FAERS Safety Report 9749952 (Version 1)
Quarter: 2013Q4

REPORT INFORMATION
  Report Type: Report from Study
  Country: MX (occurrence: MX)
  Receive Date: 20131212
  Receipt Date: 20131212
  Transmission Date: 20140711
  Serious: Yes (Other)
  Sender: FDA-Public Use
  Company Number: PHHY2012MX058522

PATIENT
  Age: 47 Year
  Sex: Female

DRUGS (5)
  1. EXFORGE [Suspect]
     Indication: HYPERTENSION
     Dosage: 1 DF, (160MG VAL/10 MG AMLO) PER DAY
     Route: 048
     Dates: start: 201202
  2. METFORMIN [Concomitant]
     Indication: DIABETES MELLITUS
     Dosage: 2 DF PER DAY
     Dates: start: 201202
  3. OMEPRAZOLE [Concomitant]
     Indication: GASTRITIS
     Dosage: 1 DF PER DAY
  4. HORMONES [Concomitant]
     Indication: MENOPAUSE
     Dosage: 1 TABLET PER DAY
     Dates: start: 201202
  5. POTASSIUM SUPPLEMENTS [Concomitant]
     Dosage: UNK

REACTIONS (2)
  - Diabetes mellitus [Unknown]
  - Blood glucose fluctuation [Unknown]
